FAERS Safety Report 11888957 (Version 3)
Quarter: 2016Q1

REPORT INFORMATION
  Report Type: Spontaneous
  Country: US (occurrence: US)
  Receive Date: 20160105
  Receipt Date: 20160304
  Transmission Date: 20160526
  Serious: No
  Sender: FDA-Public Use
  Company Number: US-PFIZER INC-2015442882

PATIENT
  Age: 55 Year
  Sex: Female

DRUGS (12)
  1. TRIAMCINOLONE [Suspect]
     Active Substance: TRIAMCINOLONE
     Dosage: UNK
  2. PERMETHRIN. [Suspect]
     Active Substance: PERMETHRIN
     Dosage: UNK
  3. SALICYLIC ACID. [Suspect]
     Active Substance: SALICYLIC ACID
     Dosage: UNK
  4. XANAX [Suspect]
     Active Substance: ALPRAZOLAM
     Dosage: UNK
  5. ERYTHROMYCIN. [Suspect]
     Active Substance: ERYTHROMYCIN
     Dosage: UNK
  6. FELDENE [Suspect]
     Active Substance: PIROXICAM
     Dosage: UNK
  7. KEFLEX [Suspect]
     Active Substance: CEPHALEXIN
     Dosage: UNK
  8. LEVAQUIN [Suspect]
     Active Substance: LEVOFLOXACIN
     Dosage: UNK
  9. RHINOCORT [Suspect]
     Active Substance: BUDESONIDE
     Dosage: UNK
  10. TOLECTIN [Suspect]
     Active Substance: TOLMETIN SODIUM
     Dosage: UNK
  11. CEDEX [Suspect]
     Active Substance: CEFTIBUTEN
     Dosage: UNK
  12. ABILIFY [Suspect]
     Active Substance: ARIPIPRAZOLE
     Dosage: UNK

REACTIONS (1)
  - Drug hypersensitivity [Unknown]
